FAERS Safety Report 18972030 (Version 3)
Quarter: 2021Q3

REPORT INFORMATION
  Report Type: Spontaneous
  Country: JP (occurrence: JP)
  Receive Date: 20210305
  Receipt Date: 20210727
  Transmission Date: 20211014
  Serious: Yes (Hospitalization, Other)
  Sender: FDA-Public Use
  Company Number: JP-UNITED THERAPEUTICS-UNT-2017-012840

PATIENT
  Age: 35 Year
  Sex: Female

DRUGS (24)
  1. RIOCIGUAT. [Concomitant]
     Active Substance: RIOCIGUAT
     Indication: PULMONARY ARTERIAL HYPERTENSION
     Dosage: UNK
     Route: 048
     Dates: start: 20160123
  2. MAINTATE [Concomitant]
     Active Substance: BISOPROLOL FUMARATE
     Indication: PULMONARY ARTERIAL HYPERTENSION
     Dosage: UNK
     Route: 048
     Dates: start: 20160123, end: 20160513
  3. AMBRISENTAN [Concomitant]
     Active Substance: AMBRISENTAN
     Indication: PULMONARY ARTERIAL HYPERTENSION
     Dosage: UNK
     Route: 065
     Dates: start: 20150713
  4. DIART [AZOSEMIDE] [Concomitant]
     Active Substance: AZOSEMIDE
     Indication: PULMONARY ARTERIAL HYPERTENSION
     Dosage: UNK
     Route: 048
     Dates: start: 20160307
  5. METHYCOBAL [Concomitant]
     Active Substance: METHYLCOBALAMIN
     Indication: PRODUCT USED FOR UNKNOWN INDICATION
     Dosage: UNK
     Route: 048
     Dates: start: 20160315
  6. NEXIUM [Concomitant]
     Active Substance: ESOMEPRAZOLE MAGNESIUM
     Indication: PROPHYLAXIS
     Dosage: UNK
     Route: 048
     Dates: start: 20160405, end: 20160412
  7. TRAMCET [Concomitant]
     Active Substance: ACETAMINOPHEN\TRAMADOL
     Indication: PROPHYLAXIS
     Dosage: UNK
     Route: 048
     Dates: start: 20170315
  8. REMODULIN [Suspect]
     Active Substance: TREPROSTINIL
     Dosage: 0.060 ?G/KG, CONTINUING
     Route: 058
     Dates: start: 201710
  9. REMODULIN [Suspect]
     Active Substance: TREPROSTINIL
     Dosage: 0.051 ?G/KG, CONTINUING
     Route: 058
     Dates: start: 201906
  10. E KEPPRA [Concomitant]
     Active Substance: LEVETIRACETAM
     Indication: GENERALISED ONSET NON-MOTOR SEIZURE
     Dosage: UNK
     Route: 048
     Dates: start: 20160123
  11. LYRICA [Concomitant]
     Active Substance: PREGABALIN
     Indication: PRODUCT USED FOR UNKNOWN INDICATION
     Dosage: UNK
     Route: 048
     Dates: start: 20160421
  12. REMODULIN [Suspect]
     Active Substance: TREPROSTINIL
     Indication: PULMONARY ARTERIAL HYPERTENSION
     Dosage: 0.0207 ?G/KG, CONTINUING
     Route: 058
     Dates: start: 20160322
  13. L?CARBOCYSTEINE [Concomitant]
     Active Substance: CARBOCYSTEINE
     Indication: PROPHYLAXIS
     Dosage: UNK
     Route: 048
     Dates: start: 20160317, end: 20160530
  14. NU?LOTAN [Concomitant]
     Active Substance: LOSARTAN POTASSIUM
     Indication: PROPHYLAXIS
     Dosage: UNK
     Route: 048
     Dates: start: 20170823
  15. REMODULIN [Suspect]
     Active Substance: TREPROSTINIL
     Dosage: 0.0921 ?G/KG, CONTINUING
     Route: 058
     Dates: start: 201604
  16. GASMOTIN [Concomitant]
     Active Substance: MOSAPRIDE CITRATE
     Indication: PROPHYLAXIS
     Dosage: UNK
     Route: 048
     Dates: start: 20160409
  17. SLOW?K [Concomitant]
     Active Substance: POTASSIUM CHLORIDE
     Indication: PROPHYLAXIS
     Dosage: UNK
     Route: 048
     Dates: start: 20160419
  18. REMODULIN [Suspect]
     Active Substance: TREPROSTINIL
     Dosage: 0.090 ?G/KG, CONTINUING
     Route: 058
     Dates: start: 202009
  19. ALDACTONE A [Concomitant]
     Active Substance: SPIRONOLACTONE
     Indication: PULMONARY ARTERIAL HYPERTENSION
     Dosage: UNK
     Route: 048
     Dates: start: 20160224
  20. REMODULIN [Suspect]
     Active Substance: TREPROSTINIL
     Dosage: 0.0866 ?G/KG, CONTINUING
     Route: 058
     Dates: start: 201603
  21. LANSOPRAZOLE. [Concomitant]
     Active Substance: LANSOPRAZOLE
     Indication: PROPHYLAXIS
     Dosage: UNK
     Route: 048
     Dates: start: 20160123, end: 20160401
  22. MIYA?BM [Concomitant]
     Active Substance: CLOSTRIDIUM BUTYRICUM SPORES STRAIN M-55
     Indication: PROPHYLAXIS
     Dosage: UNK
     Route: 048
     Dates: start: 20160317, end: 20160327
  23. FUROSEMIDE. [Concomitant]
     Active Substance: FUROSEMIDE
     Indication: PROPHYLAXIS
     Dosage: UNK
     Route: 065
     Dates: start: 20171009, end: 20171009
  24. UPTRAVI [Concomitant]
     Active Substance: SELEXIPAG
     Indication: PULMONARY ARTERIAL HYPERTENSION
     Dosage: UNK
     Route: 048
     Dates: start: 20180418

REACTIONS (12)
  - Injection site ulcer [Unknown]
  - Injection site discolouration [Unknown]
  - Groin pain [Recovering/Resolving]
  - Injection site erythema [Recovering/Resolving]
  - Injection site induration [Unknown]
  - Injection site pain [Recovering/Resolving]
  - Dyspnoea [Recovering/Resolving]
  - Injection site pruritus [Recovering/Resolving]
  - Lymphadenopathy [Not Recovered/Not Resolved]
  - Device occlusion [Unknown]
  - Gastroenteritis [Recovered/Resolved]
  - Ileus paralytic [Recovering/Resolving]

NARRATIVE: CASE EVENT DATE: 2016
